FAERS Safety Report 25865284 (Version 3)
Quarter: 2025Q4

REPORT INFORMATION
  Report Type: Report from Study
  Country: EU (occurrence: EU)
  Receive Date: 20250930
  Receipt Date: 20251105
  Transmission Date: 20260117
  Serious: Yes (Hospitalization, Other)
  Sender: MERCK SHARP & DOHME LLC
  Company Number: EU-009507513-2282328

PATIENT
  Age: 69 Year
  Sex: Male

DRUGS (11)
  1. WINREVAIR [Suspect]
     Active Substance: SOTATERCEPT-CSRK
     Indication: Pulmonary arterial hypertension
     Dosage: 0.7 ML
     Dates: start: 202502, end: 20250916
  2. WINREVAIR [Suspect]
     Active Substance: SOTATERCEPT-CSRK
     Dosage: 0.7 ML, 4TH DOSE
     Dates: start: 20250429
  3. WINREVAIR [Suspect]
     Active Substance: SOTATERCEPT-CSRK
     Dates: start: 20250225, end: 20250922
  4. WINREVAIR [Suspect]
     Active Substance: SOTATERCEPT-CSRK
  5. TADALAFIL [Concomitant]
     Active Substance: TADALAFIL
     Dosage: 20
  6. OPSUMIT [Concomitant]
     Active Substance: MACITENTAN
     Dosage: 10 MG
  7. UPTRAVI [Concomitant]
     Active Substance: SELEXIPAG
     Dosage: 1200
  8. ELIQUIS [Concomitant]
     Active Substance: APIXABAN
     Dosage: 5
  9. CANDESARTAN [Concomitant]
     Active Substance: CANDESARTAN
     Dosage: 8 MG
  10. TORSEMIDE [Concomitant]
     Active Substance: TORSEMIDE
     Dosage: 2.5
  11. APIXABAN [Concomitant]
     Active Substance: APIXABAN
     Dates: start: 2017

REACTIONS (7)
  - Gastrointestinal angiodysplasia [Not Recovered/Not Resolved]
  - Intra-abdominal haemangioma [Unknown]
  - Epistaxis [Unknown]
  - Epistaxis [Not Recovered/Not Resolved]
  - Epistaxis [Unknown]
  - Gastrointestinal haemorrhage [Not Recovered/Not Resolved]
  - Blood loss anaemia [Not Recovered/Not Resolved]

NARRATIVE: CASE EVENT DATE: 20250101
